FAERS Safety Report 4432804-3 (Version None)
Quarter: 2004Q3

REPORT INFORMATION
  Report Type: 
  Country: None (occurrence: None)
  Receive Date: 20040823
  Receipt Date: 20040810
  Transmission Date: 20050211
  Serious: Yes (Death, Hospitalization)
  Sender: FDA-Public Use
  Company Number: 2004044057

PATIENT
  Age: 67 Year
  Sex: Male
  Weight: 39.5 kg

DRUGS (8)
  1. CARDENALIN (DOXAZOSIN) [Suspect]
     Indication: HYPERTENSION
     Dosage: 2 MG (1 IN 1 D), ORAL
     Route: 048
     Dates: start: 20040622, end: 20040701
  2. RABEPRAZOLE SODIUM [Suspect]
     Indication: REFLUX OESOPHAGITIS
     Dosage: 20 MG (10 MG, 2 IN 1 D), ORAL
     Route: 048
     Dates: start: 20040520, end: 20040701
  3. BLUTAL (CHONDROITIN SULFATE SODIUM, FERRIC CHLORIDE) [Suspect]
     Indication: ANAEMIA
     Dosage: INTRAVENOUS
     Route: 042
     Dates: end: 20040707
  4. LEVOTHYROXINE SODIUM [Concomitant]
  5. VALPROATE SODIUM [Concomitant]
  6. HALOPERIDOL [Concomitant]
  7. NILVADIPINE (NILVADIPINE) [Concomitant]
  8. EPOETIN BETA (EPOETIN BETA) [Concomitant]

REACTIONS (15)
  - ALANINE AMINOTRANSFERASE INCREASED [None]
  - ASPARTATE AMINOTRANSFERASE INCREASED [None]
  - ATRIOVENTRICULAR BLOCK COMPLETE [None]
  - BLOOD PRESSURE SYSTOLIC INCREASED [None]
  - BODY TEMPERATURE DECREASED [None]
  - C-REACTIVE PROTEIN INCREASED [None]
  - CARDIO-RESPIRATORY ARREST [None]
  - CHEYNE-STOKES RESPIRATION [None]
  - HAEMATOCRIT DECREASED [None]
  - HAEMOGLOBIN DECREASED [None]
  - LABORATORY TEST ABNORMAL [None]
  - MOUTH BREATHING [None]
  - PLATELET COUNT DECREASED [None]
  - PNEUMONIA [None]
  - RED BLOOD CELL COUNT DECREASED [None]
